FAERS Safety Report 8028266 (Version 2)
Quarter: 2013Q2

REPORT INFORMATION
  Report Type: Spontaneous
  Country: US (occurrence: US)
  Receive Date: 20110527
  Receipt Date: 20130529
  Transmission Date: 20140414
  Serious: Yes (Life-Threatening, Hospitalization, Other)
  Sender: FDA-Public Use
  Company Number: US201103003350

PATIENT
  Age: 62 Year
  Sex: Male
  Weight: 134.2 kg

DRUGS (10)
  1. BYETTA PEN DISPOSABLE [Suspect]
     Dates: start: 200512, end: 200812
  2. METFORMIN [Concomitant]
  3. AUGMENTIN [Concomitant]
  4. ASPIRIN [Concomitant]
  5. ENALAPRIL [Concomitant]
     Dosage: TAB
  6. MULTIVITAMIN [Concomitant]
     Dosage: 1DF:1 TAB
     Route: 048
  7. ADALAT [Concomitant]
  8. NIFEDIPINE [Concomitant]
     Dosage: TAB
  9. NABUMETONE [Concomitant]
     Dosage: TAB
  10. FUROSEMIDE [Concomitant]

REACTIONS (3)
  - Respiratory failure [Unknown]
  - Pancreatitis necrotising [Unknown]
  - Pancreatitis [Unknown]
